FAERS Safety Report 9516673 (Version 1)
Quarter: 2013Q3

REPORT INFORMATION
  Report Type: Spontaneous
  Country: US (occurrence: US)
  Receive Date: 20130911
  Receipt Date: 20130911
  Transmission Date: 20140515
  Serious: Yes (Hospitalization, Other)
  Sender: FDA-Public Use
  Company Number: US-JNJFOC-20130900981

PATIENT
  Sex: 0

DRUGS (1)
  1. NESIRITIDE [Suspect]
     Indication: CARDIAC FAILURE ACUTE
     Route: 042

REACTIONS (3)
  - Hospitalisation [Unknown]
  - Renal impairment [Unknown]
  - Hypotension [Unknown]
